FAERS Safety Report 7322103-4 (Version None)
Quarter: 2011Q1

REPORT INFORMATION
  Report Type: 
  Country: None (occurrence: None)
  Receive Date: 20110228
  Receipt Date: 20110214
  Transmission Date: 20110831
  Serious: Yes (Death)
  Sender: FDA-Public Use
  Company Number: US-CELGENEUS-163-21880-10123132

PATIENT
  Sex: Female

DRUGS (10)
  1. MIRALAX [Concomitant]
     Route: 065
  2. OXYCODONE [Concomitant]
     Route: 048
  3. SPIRONOLACTONE [Concomitant]
     Route: 065
  4. LASIX [Concomitant]
     Route: 065
  5. FLUCONAZOLE [Concomitant]
     Route: 065
  6. INSULIN LENTE [Concomitant]
     Dosage: 5 UNITS
     Route: 065
  7. REVLIMID [Suspect]
     Route: 048
     Dates: start: 20101101
  8. VALACYCLOVIR [Concomitant]
     Route: 065
  9. FLEXERIL [Concomitant]
     Route: 065
  10. POTASSIUM CHLORIDE [Concomitant]
     Route: 065

REACTIONS (1)
  - LEUKAEMIA PLASMACYTIC [None]
